FAERS Safety Report 20132943 (Version 2)
Quarter: 2021Q4

REPORT INFORMATION
  Report Type: Spontaneous
  Country: FR (occurrence: FR)
  Receive Date: 20211201
  Receipt Date: 20211210
  Transmission Date: 20220303
  Serious: Yes (Hospitalization)
  Sender: FDA-Public Use
  Company Number: None

PATIENT
  Age: 13 Year
  Sex: Female
  Weight: 60 kg

DRUGS (2)
  1. FLURBIPROFEN [Suspect]
     Active Substance: FLURBIPROFEN
     Indication: Back pain
     Route: 048
     Dates: end: 20210622
  2. IBUPROFEN [Suspect]
     Active Substance: IBUPROFEN
     Indication: Back pain
     Route: 048
     Dates: end: 20210622

REACTIONS (2)
  - Acute kidney injury [Recovering/Resolving]
  - Abdominal pain upper [Recovering/Resolving]

NARRATIVE: CASE EVENT DATE: 20210625
